FAERS Safety Report 17933681 (Version 3)
Quarter: 2020Q3

REPORT INFORMATION
  Report Type: Spontaneous
  Country: US (occurrence: US)
  Receive Date: 20200624
  Receipt Date: 20200807
  Transmission Date: 20201103
  Serious: Yes (Other)
  Sender: FDA-Public Use
  Company Number: US-KARYOPHARM-2020KPT000539

PATIENT

DRUGS (3)
  1. DEXAMETHASONE. [Concomitant]
     Active Substance: DEXAMETHASONE
     Indication: PRODUCT USED FOR UNKNOWN INDICATION
     Dosage: UNK
  2. XPOVIO [Suspect]
     Active Substance: SELINEXOR
     Dosage: 40 MG, WEEKLY
     Dates: start: 202007
  3. XPOVIO [Suspect]
     Active Substance: SELINEXOR
     Indication: PLASMA CELL MYELOMA
     Dosage: 60 MG, 2X/WEEK
     Route: 048
     Dates: start: 20200511, end: 20200608

REACTIONS (12)
  - Thirst [Unknown]
  - Anaemia [Unknown]
  - Cataract [Unknown]
  - Nausea [Unknown]
  - Dyspnoea [Unknown]
  - Back pain [Unknown]
  - Thrombocytopenia [Unknown]
  - Insomnia [Unknown]
  - Muscular weakness [Unknown]
  - Fatigue [Not Recovered/Not Resolved]
  - Neoplasm [Unknown]
  - Pollakiuria [Unknown]

NARRATIVE: CASE EVENT DATE: 2020
